FAERS Safety Report 5677370-X (Version None)
Quarter: 2008Q1

REPORT INFORMATION
  Report Type: 
  Country: None (occurrence: None)
  Receive Date: 20080324
  Receipt Date: 20080312
  Transmission Date: 20080703
  Serious: Yes (Other)
  Sender: FDA-Public Use
  Company Number: IE-PFIZER INC-2008019787

PATIENT
  Age: 28 Year
  Sex: Male

DRUGS (1)
  1. CHAMPIX [Suspect]
     Indication: SMOKING CESSATION THERAPY
     Route: 048
     Dates: start: 20071228, end: 20080120

REACTIONS (2)
  - DISTURBANCE IN ATTENTION [None]
  - PHARYNGOLARYNGEAL PAIN [None]
